FAERS Safety Report 8173923-8 (Version None)
Quarter: 2012Q1

REPORT INFORMATION
  Report Type: 
  Country: None (occurrence: None)
  Receive Date: 20120229
  Receipt Date: 20120228
  Transmission Date: 20120608
  Serious: Yes (Hospitalization)
  Sender: FDA-Public Use
  Company Number: CN-ROCHE-1043699

PATIENT
  Sex: Female
  Weight: 60 kg

DRUGS (7)
  1. MYCOPHENOLATE MOFETIL (CELLCEPT) [Suspect]
     Route: 048
     Dates: end: 20120201
  2. PREDNISONE TAB [Concomitant]
     Indication: RENAL TRANSPLANT
     Route: 048
     Dates: start: 20050309
  3. PROGRAF [Concomitant]
     Dosage: 1.5MG IN THE MORNING AND 1MG IN THE EVENING
     Route: 048
  4. PREDNISONE TAB [Concomitant]
     Route: 048
  5. MYCOPHENOLATE MOFETIL (CELLCEPT) [Suspect]
     Dosage: 500MG IN THE MORNING AND 750MG IN THE EVENING
     Route: 048
  6. PROGRAF [Concomitant]
     Indication: RENAL TRANSPLANT
     Route: 048
     Dates: start: 20050309
  7. MYCOPHENOLATE MOFETIL (CELLCEPT) [Suspect]
     Indication: RENAL TRANSPLANT
     Route: 048
     Dates: start: 20050309

REACTIONS (1)
  - RENAL PAIN [None]
